FAERS Safety Report 8242486-0 (Version None)
Quarter: 2012Q1

REPORT INFORMATION
  Report Type: 
  Country: None (occurrence: None)
  Receive Date: 20120329
  Receipt Date: 20120319
  Transmission Date: 20120608
  Serious: Yes (Other)
  Sender: FDA-Public Use
  Company Number: DE-NAPPMUNDI-DEU-2012-0008778

PATIENT
  Age: 55 Year
  Sex: Female

DRUGS (3)
  1. MORPHINE SULFATE [Suspect]
     Indication: PROCEDURAL PAIN
     Dosage: 10 MG, PRN
     Route: 048
  2. OXYCODONE HCL [Suspect]
     Dosage: UNK
     Dates: start: 20010101
  3. OXYCODONE HCL [Suspect]
     Indication: PROCEDURAL PAIN
     Dosage: 40 MG, TID
     Route: 048

REACTIONS (4)
  - GINGIVAL RECESSION [None]
  - DRY MOUTH [None]
  - TOOTH DISORDER [None]
  - DENTAL CARIES [None]
